FAERS Safety Report 9833981 (Version 1)
Quarter: 2014Q1

REPORT INFORMATION
  Report Type: Spontaneous
  Country: US (occurrence: US)
  Receive Date: 20140122
  Receipt Date: 20140122
  Transmission Date: 20141002
  Serious: Yes (Hospitalization)
  Sender: FDA-Public Use
  Company Number: US-BRISTOL-MYERS SQUIBB COMPANY-20008462

PATIENT
  Age: 75 Year
  Sex: Male
  Weight: 95.24 kg

DRUGS (2)
  1. COUMADIN TABS 5 MG [Suspect]
     Indication: TRANSIENT ISCHAEMIC ATTACK
     Route: 048
  2. VIAGRA [Suspect]
     Indication: ERECTILE DYSFUNCTION
     Dosage: TABS,WEEKLY PRN.
     Route: 048

REACTIONS (2)
  - Loss of consciousness [Unknown]
  - Hypotension [Unknown]
